FAERS Safety Report 11304256 (Version 1)
Quarter: 2015Q3

REPORT INFORMATION
  Report Type: Spontaneous
  Country: US (occurrence: US)
  Receive Date: 20150723
  Receipt Date: 20150723
  Transmission Date: 20151125
  Serious: No
  Sender: FDA-Public Use
  Company Number: US-JNJFOC-20150219351

PATIENT
  Age: 59 Year
  Sex: Female
  Weight: 58.97 kg

DRUGS (3)
  1. PEPCID AC [Suspect]
     Active Substance: FAMOTIDINE
     Indication: DYSPEPSIA
     Route: 048
     Dates: start: 20150221, end: 20150222
  2. PEPCID AC [Suspect]
     Active Substance: FAMOTIDINE
     Route: 048
  3. DEXALONE [Concomitant]
     Indication: GASTROOESOPHAGEAL REFLUX DISEASE
     Route: 065

REACTIONS (1)
  - Foreign body [Unknown]
